FAERS Safety Report 19381362 (Version 2)
Quarter: 2022Q1

REPORT INFORMATION
  Report Type: Report from Study
  Country: US (occurrence: US)
  Receive Date: 20210607
  Receipt Date: 20220321
  Transmission Date: 20220423
  Serious: No
  Sender: FDA-Public Use
  Company Number: US-NOVARTISTESTPH-NVSC2021US126133

PATIENT
  Sex: Male

DRUGS (2)
  1. AFINITOR [Suspect]
     Active Substance: EVEROLIMUS
     Indication: Partial seizures
     Dosage: 3 MG, QD
     Route: 048
     Dates: start: 20200902
  2. AFINITOR [Suspect]
     Active Substance: EVEROLIMUS
     Dosage: 2 MG, QD
     Route: 048

REACTIONS (3)
  - Abnormal behaviour [Unknown]
  - Stomatitis [Unknown]
  - Dysphagia [Unknown]
